FAERS Safety Report 12924647 (Version 23)
Quarter: 2017Q2

REPORT INFORMATION
  Report Type: Report from Study
  Country: US (occurrence: US)
  Receive Date: 20161108
  Receipt Date: 20170626
  Transmission Date: 20170830
  Serious: Yes (Hospitalization, Other)
  Sender: FDA-Public Use
  Company Number: US-GILEAD-2016-0241833

PATIENT
  Age: 61 Year
  Sex: Female

DRUGS (6)
  1. AMBRISENTAN [Suspect]
     Active Substance: AMBRISENTAN
     Dosage: 10 MG, UNK
     Route: 065
  2. PREDNISONE. [Suspect]
     Active Substance: PREDNISONE
     Indication: PRODUCT USED FOR UNKNOWN INDICATION
     Route: 065
  3. SILDENAFIL CITRATE. [Concomitant]
     Active Substance: SILDENAFIL CITRATE
  4. AMBRISENTAN [Suspect]
     Active Substance: AMBRISENTAN
     Indication: PRODUCT USED FOR UNKNOWN INDICATION
     Dosage: 5 MG, QD
     Route: 065
     Dates: start: 20090824
  5. REVATIO [Concomitant]
     Active Substance: SILDENAFIL CITRATE
  6. OXYGEN. [Concomitant]
     Active Substance: OXYGEN

REACTIONS (73)
  - Neoplasm malignant [Not Recovered/Not Resolved]
  - Glaucoma [Unknown]
  - Terminal state [Unknown]
  - Osteoporosis [Not Recovered/Not Resolved]
  - Dyspnoea [Not Recovered/Not Resolved]
  - Lung disorder [Not Recovered/Not Resolved]
  - Emotional disorder [Not Recovered/Not Resolved]
  - Weight decreased [Unknown]
  - Unevaluable event [Unknown]
  - Chronic obstructive pulmonary disease [Not Recovered/Not Resolved]
  - Abdominal discomfort [Not Recovered/Not Resolved]
  - Swelling [Unknown]
  - Nasal polyps [Unknown]
  - Oxygen consumption increased [Unknown]
  - Recurrent cancer [Unknown]
  - Cataract [Not Recovered/Not Resolved]
  - Lung neoplasm malignant [Unknown]
  - Malaise [Not Recovered/Not Resolved]
  - Panic attack [Not Recovered/Not Resolved]
  - Vitamin D deficiency [Not Recovered/Not Resolved]
  - Brain natriuretic peptide increased [Not Recovered/Not Resolved]
  - Anxiety [Not Recovered/Not Resolved]
  - Brain natriuretic peptide increased [Unknown]
  - Product use issue [Not Recovered/Not Resolved]
  - Thyroid mass [Not Recovered/Not Resolved]
  - Pneumonia [Not Recovered/Not Resolved]
  - Loss of consciousness [Not Recovered/Not Resolved]
  - Skin disorder [Not Recovered/Not Resolved]
  - Irritable bowel syndrome [Not Recovered/Not Resolved]
  - Unevaluable event [Not Recovered/Not Resolved]
  - Nausea [Not Recovered/Not Resolved]
  - Memory impairment [Unknown]
  - Malaise [Unknown]
  - Dyspnoea [Unknown]
  - Pneumonia [Unknown]
  - Tongue exfoliation [Unknown]
  - Decreased appetite [Not Recovered/Not Resolved]
  - Headache [Not Recovered/Not Resolved]
  - Palpitations [Not Recovered/Not Resolved]
  - Insomnia [Unknown]
  - Pulmonary arterial hypertension [Not Recovered/Not Resolved]
  - Cardiac disorder [Unknown]
  - Candida infection [Not Recovered/Not Resolved]
  - Vomiting [Unknown]
  - Nasal septum deviation [Unknown]
  - Insomnia [Not Recovered/Not Resolved]
  - Pyrexia [Unknown]
  - Cough [Unknown]
  - Confusional state [Not Recovered/Not Resolved]
  - Cardiac failure [Unknown]
  - Oxygen saturation decreased [Not Recovered/Not Resolved]
  - Diverticulitis [Not Recovered/Not Resolved]
  - Influenza [Not Recovered/Not Resolved]
  - Skin fissures [Unknown]
  - Influenza [Not Recovered/Not Resolved]
  - Lymph node palpable [Unknown]
  - Sensory loss [Unknown]
  - Intervertebral disc degeneration [Not Recovered/Not Resolved]
  - Fibromyalgia [Not Recovered/Not Resolved]
  - Feeling abnormal [Not Recovered/Not Resolved]
  - Weight decreased [Not Recovered/Not Resolved]
  - Hypersensitivity [Not Recovered/Not Resolved]
  - Fatigue [Not Recovered/Not Resolved]
  - Palpitations [Unknown]
  - Sleep disorder [Unknown]
  - Haemorrhage [Not Recovered/Not Resolved]
  - Drug dose omission [Unknown]
  - Escherichia infection [Not Recovered/Not Resolved]
  - Oxygen saturation decreased [Unknown]
  - Feeling cold [Not Recovered/Not Resolved]
  - Hypotension [Not Recovered/Not Resolved]
  - Intervertebral disc protrusion [Unknown]
  - Cerumen impaction [Unknown]

NARRATIVE: CASE EVENT DATE: 201612
